FAERS Safety Report 5630327-7 (Version None)
Quarter: 2008Q1

REPORT INFORMATION
  Report Type: 
  Country: None (occurrence: None)
  Receive Date: 20080213
  Receipt Date: 20080129
  Transmission Date: 20080703
  Serious: Yes (Other)
  Sender: FDA-Public Use
  Company Number: HP200800005

PATIENT
  Age: 71 Year
  Sex: Female

DRUGS (26)
  1. SANTYL [Suspect]
     Indication: COMPLEX REGIONAL PAIN SYNDROME
     Dosage: QD, TOPICAL
     Route: 061
     Dates: start: 20070822, end: 20080123
  2. SANTYL [Suspect]
     Indication: ULCER
     Dosage: QD, TOPICAL
     Route: 061
     Dates: start: 20070822, end: 20080123
  3. PREDNISONE TAB [Concomitant]
  4. OMEPRAZOLE [Concomitant]
  5. PERCOCET [Concomitant]
  6. TRAZODONE HCL [Concomitant]
  7. SOMA [Concomitant]
  8. NOVOLOG [Concomitant]
  9. HYDROMORPHONE HCL [Concomitant]
  10. BUPIVACAINE [Concomitant]
  11. CLONIDINE [Concomitant]
  12. METOLAZONE [Concomitant]
  13. LEXAPRO [Concomitant]
  14. K-DUR 10 [Concomitant]
  15. ZANTAC 150 [Concomitant]
  16. LASIX [Concomitant]
  17. MEVACOR [Concomitant]
  18. FLONASE [Concomitant]
  19. LYRICA [Concomitant]
  20. ZYRTEC-D 12 HOUR [Concomitant]
  21. ALBUTEROL [Concomitant]
  22. FLOVENT HFA (FLUTICASONE PROPIONATE) [Concomitant]
  23. LACTULOSE [Concomitant]
  24. SENOKOT [Concomitant]
  25. CENTRUM SILVER (ASCORBIC ACID, CALCIUM, MINERALS NOS, RETINOL, TOCOPHE [Concomitant]
  26. CALTRATE + VITAMIN D (CALCIUM CARBONATE, COLECALCIFEROL) [Concomitant]

REACTIONS (5)
  - APPLICATION SITE ERYTHEMA [None]
  - APPLICATION SITE INFLAMMATION [None]
  - APPLICATION SITE PAIN [None]
  - PSEUDOMONAS INFECTION [None]
  - WOUND INFECTION STAPHYLOCOCCAL [None]
